APPROVED DRUG PRODUCT: DILTIAZEM HYDROCHLORIDE
Active Ingredient: DILTIAZEM HYDROCHLORIDE
Strength: 240MG
Dosage Form/Route: CAPSULE, EXTENDED RELEASE;ORAL
Application: A208783 | Product #003 | TE Code: AB3
Applicant: NOVAST LABORATORIES LTD
Approved: Jun 14, 2019 | RLD: No | RS: No | Type: RX